FAERS Safety Report 7692371-8 (Version None)
Quarter: 2011Q3

REPORT INFORMATION
  Report Type: 
  Country: None (occurrence: None)
  Receive Date: 20110818
  Receipt Date: 20110809
  Transmission Date: 20111222
  Serious: Yes (Hospitalization)
  Sender: FDA-Public Use
  Company Number: US-NOVOPROD-333373

PATIENT
  Age: 48 Year
  Sex: Female

DRUGS (1)
  1. VICTOZA [Suspect]
     Indication: PRODUCT USED FOR UNKNOWN INDICATION
     Dosage: UNK
     Route: 058
     Dates: start: 20100101

REACTIONS (3)
  - CHOLECYSTECTOMY [None]
  - BLOOD GLUCOSE DECREASED [None]
  - ABDOMINAL PAIN UPPER [None]
